FAERS Safety Report 24281979 (Version 1)
Quarter: 2024Q3

REPORT INFORMATION
  Report Type: Spontaneous
  Country: US (occurrence: None)
  Receive Date: 20240903
  Receipt Date: 20240903
  Transmission Date: 20241017
  Serious: Yes (Disabling)
  Sender: Public
  Company Number: None

PATIENT
  Age: 65 Year
  Sex: Female
  Weight: 85.5 kg

DRUGS (16)
  1. MOUNJARO [Suspect]
     Active Substance: TIRZEPATIDE
     Indication: Type 2 diabetes mellitus
     Dosage: OTHER FREQUENCY : WEEKLY;?OTHER ROUTE : INTO FATTY AREA;?
     Route: 050
     Dates: start: 20240301, end: 20240825
  2. VENLAFAXINE [Concomitant]
  3. TRAZODONE [Concomitant]
     Active Substance: TRAZODONE HYDROCHLORIDE
  4. ATOMOXETINE [Concomitant]
     Active Substance: ATOMOXETINE HYDROCHLORIDE
  5. METFORMIN [Concomitant]
  6. PROGESTERONE [Concomitant]
     Active Substance: PROGESTERONE
  7. ATORVASTATIN [Concomitant]
  8. REPAGLINIDE [Concomitant]
     Active Substance: REPAGLINIDE
  9. CLOBETASOL [Concomitant]
  10. TACROLIMUS [Concomitant]
     Active Substance: TACROLIMUS
  11. TRESIBA [Concomitant]
     Active Substance: INSULIN DEGLUDEC
  12. estradiol patch [Concomitant]
  13. METHYLCOBALAMIN [Concomitant]
     Active Substance: METHYLCOBALAMIN
  14. E [Concomitant]
  15. ASPIRIN [Concomitant]
     Active Substance: ASPIRIN
  16. multivitamin [Concomitant]

REACTIONS (1)
  - Anhedonia [None]

NARRATIVE: CASE EVENT DATE: 20240825
